FAERS Safety Report 4532636-1 (Version None)
Quarter: 2004Q4

REPORT INFORMATION
  Report Type: 
  Country: None (occurrence: None)
  Receive Date: 20041220
  Receipt Date: 20041220
  Transmission Date: 20050328
  Serious: Yes (Other)
  Sender: FDA-Public Use
  Company Number: None

PATIENT
  Age: 71 Year
  Sex: Female

DRUGS (1)
  1. ARANESP [Suspect]
     Indication: ANAEMIA
     Dosage: SQ Q  2 WKS
     Route: 058
     Dates: start: 20031111

REACTIONS (3)
  - BLISTER [None]
  - PRURITUS GENERALISED [None]
  - RASH GENERALISED [None]
